FAERS Safety Report 11082700 (Version 1)
Quarter: 2015Q2

REPORT INFORMATION
  Report Type: Spontaneous
  Country: US (occurrence: US)
  Receive Date: 20150501
  Receipt Date: 20150501
  Transmission Date: 20150821
  Serious: No
  Sender: FDA-Public Use
  Company Number: US-ABBVIE-14P-163-1249230-00

PATIENT
  Sex: Male
  Weight: 90.8 kg

DRUGS (5)
  1. ZOCOR [Concomitant]
     Active Substance: SIMVASTATIN
     Indication: BLOOD CHOLESTEROL INCREASED
  2. ANDROGEL [Suspect]
     Active Substance: TESTOSTERONE
     Dosage: TWO 2.5 GRAM PACKETS
     Route: 061
     Dates: start: 201307, end: 2014
  3. ANDROGEL [Suspect]
     Active Substance: TESTOSTERONE
     Indication: BLOOD TESTOSTERONE DECREASED
     Dosage: TWO 2.5 GRAM PACKETS
     Route: 061
     Dates: start: 201403
  4. ANDROGEL [Suspect]
     Active Substance: TESTOSTERONE
     Dosage: 40.5MG QOD AND ALTERNATING DAYS 81 MG
     Route: 061
     Dates: start: 2014, end: 2014
  5. VOLTAREN [Concomitant]
     Active Substance: DICLOFENAC SODIUM
     Indication: NECK PAIN

REACTIONS (2)
  - Drug administered at inappropriate site [Not Recovered/Not Resolved]
  - Blood testosterone decreased [Not Recovered/Not Resolved]

NARRATIVE: CASE EVENT DATE: 2014
